FAERS Safety Report 9321751 (Version 1)
Quarter: 2013Q2

REPORT INFORMATION
  Report Type: Spontaneous
  Country: US (occurrence: None)
  Receive Date: 20130530
  Receipt Date: 20130530
  Transmission Date: 20140414
  Serious: Yes (Other)
  Sender: FDA-Public Use
  Company Number: None

PATIENT
  Age: 71 Year
  Sex: Male
  Weight: 64.41 kg

DRUGS (2)
  1. THEOPHYLLINE [Suspect]
     Indication: CHRONIC OBSTRUCTIVE PULMONARY DISEASE
     Dosage: TWO BID ORAL
     Route: 048
     Dates: start: 20130507
  2. THEOPHYLLINE [Suspect]
     Indication: COUGH
     Dosage: TWO BID ORAL
     Route: 048
     Dates: start: 20130507

REACTIONS (3)
  - Nausea [None]
  - Dyspepsia [None]
  - Product substitution issue [None]
